FAERS Safety Report 7440371-5 (Version None)
Quarter: 2011Q2

REPORT INFORMATION
  Report Type: 
  Country: None (occurrence: None)
  Receive Date: 20110427
  Receipt Date: 20110322
  Transmission Date: 20111010
  Serious: Yes (Other)
  Sender: FDA-Public Use
  Company Number: US-ASTRAZENECA-2011SE16586

PATIENT
  Age: 79 Year
  Sex: Female

DRUGS (3)
  1. PRILOSEC [Suspect]
     Route: 048
  2. NEXIUM [Suspect]
     Route: 048
  3. PREVACID [Concomitant]

REACTIONS (4)
  - DRUG DOSE OMISSION [None]
  - PEPTIC ULCER HAEMORRHAGE [None]
  - MALAISE [None]
  - OEDEMA PERIPHERAL [None]
